FAERS Safety Report 18103983 (Version 1)
Quarter: 2020Q3

REPORT INFORMATION
  Report Type: Spontaneous
  Country: US (occurrence: US)
  Receive Date: 20200801
  Receipt Date: 20200801
  Transmission Date: 20201103
  Serious: No
  Sender: FDA-Public Use
  Company Number: None

PATIENT
  Age: 62 Year
  Sex: Female
  Weight: 60.75 kg

DRUGS (1)
  1. NEXT HAND SANITIZER [Suspect]
     Active Substance: ALCOHOL
     Indication: INFECTION PROPHYLAXIS
     Dosage: ?          QUANTITY:8 OUNCE(S);?
     Route: 061

REACTIONS (3)
  - Product odour abnormal [None]
  - Recalled product [None]
  - Headache [None]

NARRATIVE: CASE EVENT DATE: 20200715
